FAERS Safety Report 9301579 (Version 2)
Quarter: 2013Q4

REPORT INFORMATION
  Report Type: Report from Study
  Country: US (occurrence: US)
  Receive Date: 20130521
  Receipt Date: 20131231
  Transmission Date: 20140711
  Serious: Yes (Hospitalization, Other)
  Sender: FDA-Public Use
  Company Number: US-ALEXION-A201301075

PATIENT
  Sex: Female
  Weight: 83 kg

DRUGS (18)
  1. SOLIRIS [Suspect]
     Indication: PAROXYSMAL NOCTURNAL HAEMOGLOBINURIA
     Dosage: UNK
     Route: 042
  2. SOLIRIS [Suspect]
     Dosage: 900 MG, Q2W
     Route: 042
  3. ADVAIR DISKUS [Concomitant]
     Dosage: UNK
  4. ALBUTEROL [Concomitant]
     Dosage: UNK, PRN
  5. BENADRYL [Concomitant]
     Dosage: 25 MG, QID PRN
     Route: 048
  6. DILAUDID [Concomitant]
     Indication: PAIN
     Dosage: 2 MG-4 MG, Q4H PRN
  7. EXJADE [Concomitant]
     Dosage: 500 MG, TID
     Route: 048
  8. FOLIC ACID [Concomitant]
     Dosage: UNK
     Route: 048
  9. IMDUR [Concomitant]
     Dosage: 30 MG, QD
     Route: 048
  10. LOVENOX [Concomitant]
     Dosage: 100 MG, QD
     Route: 058
  11. MULTIVITAMIN [Concomitant]
     Route: 048
  12. OXYCODONE [Concomitant]
     Indication: PAIN
     Dosage: 30 MG,Q3-4H PRN
     Route: 048
  13. ASPIRIN [Concomitant]
     Dosage: UNK
  14. PHENERGAN [Concomitant]
     Dosage: UNK
  15. PLAVIX [Concomitant]
     Dosage: UNK
  16. RESTORIL [Concomitant]
     Dosage: UNK
  17. SPIRIVA [Concomitant]
     Dosage: UNK
  18. PAXIL [Concomitant]
     Dosage: 10 MG, QD
     Route: 048

REACTIONS (6)
  - Arachnoid cyst [Unknown]
  - Serum ferritin increased [Unknown]
  - Headache [Unknown]
  - Abdominal pain [Recovering/Resolving]
  - Back pain [Unknown]
  - Cough [Unknown]
